FAERS Safety Report 5752812-X (Version None)
Quarter: 2008Q2

REPORT INFORMATION
  Report Type: 
  Country: None (occurrence: None)
  Receive Date: 20080527
  Receipt Date: 20080527
  Transmission Date: 20081010
  Serious: No
  Sender: FDA-Public Use
  Company Number: None

PATIENT
  Sex: Female

DRUGS (4)
  1. REVLIMID [Suspect]
     Indication: MULTIPLE MYELOMA
     Dosage: 15MG DAILY PO
     Route: 048
     Dates: start: 20080429, end: 20080502
  2. DEXAMETHASONE TAB [Concomitant]
  3. PROCRIT [Concomitant]
  4. ASPIRIN [Concomitant]

REACTIONS (1)
  - PRURITUS [None]
